FAERS Safety Report 5892938-3 (Version None)
Quarter: 2008Q3

REPORT INFORMATION
  Report Type: 
  Country: None (occurrence: None)
  Receive Date: 20080922
  Receipt Date: 20080922
  Transmission Date: 20090109
  Serious: Yes (Other)
  Sender: FDA-Public Use
  Company Number: None

PATIENT
  Age: 58 Year
  Sex: Male
  Weight: 89.8122 kg

DRUGS (2)
  1. CRESTOR [Suspect]
  2. LIPITOR [Suspect]

REACTIONS (5)
  - CACHEXIA [None]
  - MUSCLE DISORDER [None]
  - MYOPATHY [None]
  - PAIN IN EXTREMITY [None]
  - SOFT TISSUE DISORDER [None]
